FAERS Safety Report 18256118 (Version 2)
Quarter: 2020Q3

REPORT INFORMATION
  Report Type: Report from Study
  Country: CA (occurrence: CA)
  Receive Date: 20200911
  Receipt Date: 20200914
  Transmission Date: 20201103
  Serious: Yes (Death)
  Sender: FDA-Public Use
  Company Number: CA-ASTRAZENECA-2020SF15718

PATIENT
  Age: 24649 Day
  Sex: Male

DRUGS (1)
  1. CALQUENCE [Suspect]
     Active Substance: ACALABRUTINIB
     Indication: MANTLE CELL LYMPHOMA
     Dosage: 100.0MG UNKNOWN
     Route: 048
     Dates: start: 20200602, end: 20200821

REACTIONS (1)
  - Death [Fatal]

NARRATIVE: CASE EVENT DATE: 20200821
